FAERS Safety Report 20372602 (Version 1)
Quarter: 2022Q1

REPORT INFORMATION
  Report Type: Spontaneous
  Country: US (occurrence: US)
  Receive Date: 20220125
  Receipt Date: 20220125
  Transmission Date: 20220424
  Serious: No
  Sender: FDA-Public Use
  Company Number: US-GLENMARK PHARMACEUTICALS-2021GMK069214

PATIENT

DRUGS (2)
  1. DROSPIRENONE\ETHINYL ESTRADIOL [Suspect]
     Active Substance: DROSPIRENONE\ETHINYL ESTRADIOL
     Indication: Contraception
     Dosage: 1 DOSAGE FORM (3 MG/0.03 MG), OD (1 PILL A DAY)
     Route: 048
     Dates: start: 20200318
  2. ECONTRA EZ [Concomitant]
     Active Substance: LEVONORGESTREL
     Indication: Contraception
     Dosage: 1.5 MILLIGRAM, QD
     Route: 048
     Dates: start: 20211201

REACTIONS (1)
  - Product dose omission issue [Unknown]
